FAERS Safety Report 9695766 (Version 1)
Quarter: 2013Q4

REPORT INFORMATION
  Report Type: Spontaneous
  Country: US (occurrence: US)
  Receive Date: 20131119
  Receipt Date: 20131119
  Transmission Date: 20140711
  Serious: Yes (Hospitalization, Other)
  Sender: FDA-Public Use
  Company Number: US-AMGEN-USASP2013081245

PATIENT
  Age: 41 Year
  Sex: Female

DRUGS (4)
  1. ENBREL [Suspect]
     Indication: PSORIASIS
     Dosage: 50 MG, QWK
     Route: 065
     Dates: start: 19990301
  2. ENBREL [Suspect]
     Indication: PSORIATIC ARTHROPATHY
  3. REMICAIDE [Suspect]
     Indication: PRODUCT USED FOR UNKNOWN INDICATION
     Dosage: UNK
     Route: 065
     Dates: start: 2008
  4. CORTICOSTEROID NOS [Suspect]
     Indication: MUSCULOSKELETAL PAIN
     Dosage: UNK
     Route: 065
     Dates: start: 201306, end: 2013

REACTIONS (10)
  - Pericarditis [Recovered/Resolved]
  - Spinal cord operation [Recovered/Resolved]
  - Depression [Not Recovered/Not Resolved]
  - Lupus-like syndrome [Recovered/Resolved]
  - Musculoskeletal pain [Recovered/Resolved]
  - Anger [Recovered/Resolved]
  - Arthralgia [Not Recovered/Not Resolved]
  - Headache [Not Recovered/Not Resolved]
  - Lymphadenopathy [Not Recovered/Not Resolved]
  - Psoriasis [Not Recovered/Not Resolved]
